FAERS Safety Report 18458961 (Version 3)
Quarter: 2020Q4

REPORT INFORMATION
  Report Type: Spontaneous
  Country: JP (occurrence: JP)
  Receive Date: 20201103
  Receipt Date: 20201123
  Transmission Date: 20210114
  Serious: Yes (Other)
  Sender: FDA-Public Use
  Company Number: JP-ABBVIE-19K-087-3199706-00

PATIENT
  Age: 58 Year
  Sex: Female
  Weight: 42 kg

DRUGS (4)
  1. IMBRUVICA [Suspect]
     Active Substance: IBRUTINIB
     Route: 048
     Dates: start: 20200129
  2. FEBURIC [Suspect]
     Active Substance: FEBUXOSTAT
     Indication: HYPERURICAEMIA
     Route: 048
     Dates: start: 20191111, end: 20191125
  3. PARIET [Suspect]
     Active Substance: RABEPRAZOLE SODIUM
     Indication: PROPHYLAXIS
     Route: 048
     Dates: start: 20191112, end: 20191125
  4. IMBRUVICA [Suspect]
     Active Substance: IBRUTINIB
     Indication: CHRONIC LYMPHOCYTIC LEUKAEMIA
     Route: 048
     Dates: start: 20191112, end: 20191124

REACTIONS (3)
  - Stomatitis [Recovered/Resolved]
  - Lymphocytosis [Recovered/Resolved]
  - Palpable purpura [Recovered/Resolved]

NARRATIVE: CASE EVENT DATE: 20191113
